FAERS Safety Report 7037307-8 (Version None)
Quarter: 2010Q4

REPORT INFORMATION
  Report Type: 
  Country: None (occurrence: None)
  Receive Date: 20101011
  Receipt Date: 20101001
  Transmission Date: 20110411
  Serious: Yes (Hospitalization, Other)
  Sender: FDA-Public Use
  Company Number: DE-WYE-H06309408

PATIENT
  Sex: Male
  Weight: 94 kg

DRUGS (11)
  1. CYCLOSPORINE [Suspect]
     Indication: PROPHYLAXIS AGAINST TRANSPLANT REJECTION
     Dosage: ^220 BID^
     Route: 048
     Dates: start: 20070406, end: 20070101
  2. CYCLOSPORINE [Suspect]
     Dosage: 90 BID
     Route: 048
     Dates: start: 20070607
  3. CELL CEPT [Concomitant]
     Indication: IMMUNOSUPPRESSANT DRUG THERAPY
     Dosage: 2 X 500 MG (FREQUENCY NOT REPORTED)
     Route: 065
  4. CELL CEPT [Concomitant]
     Indication: PROPHYLAXIS AGAINST TRANSPLANT REJECTION
  5. IDEOS [Concomitant]
     Indication: OSTEOPOROSIS PROPHYLAXIS
     Dosage: ^1-0-0^
     Route: 065
  6. CARMIAN [Concomitant]
     Indication: HYPERTENSION
     Dosage: 15 MG (FREQUENCY NOT REPORTED)
     Route: 065
  7. METOPROLOL SUCCINATE [Concomitant]
     Indication: HYPERTENSION
     Dosage: 95 MG
     Route: 065
  8. PANTOPRAZOLE SODIUM [Concomitant]
     Indication: PROPHYLAXIS AGAINST GASTROINTESTINAL ULCER
     Dosage: 20 MG (FREQUENCY NOT REPORTED)
     Route: 065
  9. DECORTIN [Concomitant]
     Indication: IMMUNOSUPPRESSANT DRUG THERAPY
     Dosage: 7.5 MG (FREQUENCY NOT REPORTED)
     Route: 065
  10. DECORTIN [Concomitant]
     Indication: PROPHYLAXIS AGAINST TRANSPLANT REJECTION
     Dosage: 02-APR-2009, DOSE DECREASED TO 5 MG
  11. ZEFFIX [Concomitant]
     Indication: ANTIVIRAL PROPHYLAXIS
     Dosage: 100 MG (FREQUENCY NOT REPORTED)
     Route: 065

REACTIONS (2)
  - HEPATIC NEOPLASM MALIGNANT RECURRENT [None]
  - METASTASIS [None]
